FAERS Safety Report 9919306 (Version 1)
Quarter: 2014Q1

REPORT INFORMATION
  Report Type: Spontaneous
  Country: US (occurrence: US)
  Receive Date: 20140224
  Receipt Date: 20140224
  Transmission Date: 20141002
  Serious: Yes (Other)
  Sender: FDA-Public Use
  Company Number: US-SA-2014SA020779

PATIENT
  Age: 67 Year
  Sex: Female

DRUGS (4)
  1. MULTAQ [Suspect]
     Indication: ATRIAL FIBRILLATION
     Dosage: TAKEN FROM: 3 MONTHS.
     Route: 065
  2. ANTIHYPERTENSIVES [Concomitant]
     Indication: HYPERTENSION
  3. CHOLESTEROL- AND TRIGLYCERIDE REDUCERS [Concomitant]
  4. ASPIRIN [Concomitant]

REACTIONS (2)
  - Renal impairment [Not Recovered/Not Resolved]
  - Blood creatinine increased [Not Recovered/Not Resolved]
